FAERS Safety Report 11189286 (Version 1)
Quarter: 2015Q2

REPORT INFORMATION
  Report Type: Report from Study
  Country: US (occurrence: None)
  Receive Date: 20150603
  Receipt Date: 20150603
  Transmission Date: 20150821
  Serious: No
  Sender: FDA-Public Use
  Company Number: 2015TASUS000718

PATIENT
  Age: 45 Year
  Sex: Male
  Weight: 75.3 kg

DRUGS (11)
  1. NOVOLOG [Concomitant]
     Active Substance: INSULIN ASPART
  2. CARVEDILOL. [Concomitant]
     Active Substance: CARVEDILOL
  3. LIPITOR [Concomitant]
     Active Substance: ATORVASTATIN CALCIUM
  4. VITAMIN B (VITAMIN B COMPLEX) [Concomitant]
  5. TESTOSTERONE. [Concomitant]
     Active Substance: TESTOSTERONE
  6. HETLIOZ [Suspect]
     Active Substance: TASIMELTEON
     Indication: CIRCADIAN RHYTHM SLEEP DISORDER
     Dosage: 20 MMG, QHS, ORAL
     Route: 048
     Dates: start: 201502
  7. GABAPENTIN. [Concomitant]
     Active Substance: GABAPENTIN
  8. PRILOSEC (OMPRAZOLE) [Concomitant]
  9. GEMFIBROZIL. [Concomitant]
     Active Substance: GEMFIBROZIL
  10. MAGNESIUM (MAGNESIUM HYDROXIDE) [Concomitant]
  11. LISINOPRIL (LISNOPRIL DIHYDRATE) [Concomitant]

REACTIONS (3)
  - Drug interaction [None]
  - Drug effect decreased [None]
  - Somnolence [None]

NARRATIVE: CASE EVENT DATE: 2015
